FAERS Safety Report 23727274 (Version 1)
Quarter: 2024Q2

REPORT INFORMATION
  Report Type: Report from Study
  Country: CL (occurrence: CL)
  Receive Date: 20240410
  Receipt Date: 20240410
  Transmission Date: 20240716
  Serious: Yes (Other)
  Sender: FDA-Public Use
  Company Number: CL-002147023-NVSC2023CL178234

PATIENT
  Age: 62 Year
  Sex: Female

DRUGS (3)
  1. KISQALI [Suspect]
     Active Substance: RIBOCICLIB
     Indication: Breast cancer
     Dosage: 600 MG, QD (3)
     Route: 048
     Dates: start: 20230729
  2. KISQALI [Suspect]
     Active Substance: RIBOCICLIB
     Dosage: 3 DOSAGE FORM (3 TABLETS)
     Route: 048
     Dates: start: 20240327
  3. LETROZOLE [Suspect]
     Active Substance: LETROZOLE
     Indication: Product used for unknown indication
     Dosage: UNK
     Route: 065

REACTIONS (10)
  - Hepatitis [Unknown]
  - Urinary tract discomfort [Recovered/Resolved]
  - Madarosis [Unknown]
  - Hypersensitivity [Unknown]
  - Weight decreased [Unknown]
  - Abdominal pain upper [Unknown]
  - Decreased appetite [Unknown]
  - Anaemia [Unknown]
  - Platelet count decreased [Unknown]
  - Alopecia [Unknown]

NARRATIVE: CASE EVENT DATE: 20230807
